FAERS Safety Report 25129024 (Version 4)
Quarter: 2025Q4

REPORT INFORMATION
  Report Type: Report from Study
  Country: US (occurrence: US)
  Receive Date: 20250327
  Receipt Date: 20251210
  Transmission Date: 20260117
  Serious: Yes (Hospitalization)
  Sender: ABBVIE
  Company Number: US-ABBVIE-6195415

PATIENT
  Age: 48 Year
  Sex: Female
  Weight: 61 kg

DRUGS (9)
  1. SKYRIZI [Suspect]
     Active Substance: RISANKIZUMAB-RZAA
     Indication: Crohn^s disease
     Dosage: FORM STRENGTH:180 MG/ 1.2 ML, AT 12 WEEKS
     Route: 058
     Dates: start: 2025, end: 2025
  2. SKYRIZI [Suspect]
     Active Substance: RISANKIZUMAB-RZAA
     Dosage: FORM STRENGTH:360 MG/2.4ML
     Route: 058
     Dates: start: 20250615
  3. SKYRIZI [Suspect]
     Active Substance: RISANKIZUMAB-RZAA
     Indication: Crohn^s disease
     Dosage: TIME INTERVAL: TOTAL: FORM STRENGTH: 600 MG/10 ML, AT WEEK 0
     Route: 042
     Dates: start: 20250314, end: 20250314
  4. SKYRIZI [Suspect]
     Active Substance: RISANKIZUMAB-RZAA
     Indication: Crohn^s disease
     Dosage: TIME INTERVAL: TOTAL: FORM STRENGTH: 600 MG/10 ML, AT WEEK 4
     Route: 042
     Dates: start: 20250411, end: 20250411
  5. SKYRIZI [Suspect]
     Active Substance: RISANKIZUMAB-RZAA
     Indication: Crohn^s disease
     Dosage: TIME INTERVAL: TOTAL: FORM STRENGTH: 600 MG/10 ML, AT WEEK 8
     Route: 042
     Dates: start: 20250618, end: 20250618
  6. AMLODIPINE BESYLATE [Concomitant]
     Active Substance: AMLODIPINE BESYLATE
     Indication: Product used for unknown indication
     Route: 048
  7. METOCLOPRAMIDE HYDROCHLORIDE [Concomitant]
     Active Substance: METOCLOPRAMIDE HYDROCHLORIDE
     Indication: Nausea
     Dosage: TAKE 1 TABLET AS NEEDED FOR NAUSEA
     Dates: start: 20240610
  8. METOPROLOL SUCCINATE [Concomitant]
     Active Substance: METOPROLOL SUCCINATE
     Indication: Product used for unknown indication
     Route: 048
  9. PANTOPRAZOLE SODIUM [Concomitant]
     Active Substance: PANTOPRAZOLE SODIUM
     Indication: Product used for unknown indication
     Dosage: STRENGTH-40 MG ORAL TABLET DELAYED RELEASE TAKE 1 TABLET TWICE DAILY
     Route: 048
     Dates: start: 20250311

REACTIONS (2)
  - Crohn^s disease [Recovering/Resolving]
  - Frequent bowel movements [Recovering/Resolving]

NARRATIVE: CASE EVENT DATE: 20250101
